FAERS Safety Report 6073981-0 (Version None)
Quarter: 2009Q1

REPORT INFORMATION
  Report Type: 
  Country: None (occurrence: None)
  Receive Date: 20090209
  Receipt Date: 20090209
  Transmission Date: 20090719
  Serious: No
  Sender: FDA-Public Use
  Company Number: None

PATIENT
  Age: 20 Year
  Sex: Female
  Weight: 78.0187 kg

DRUGS (1)
  1. AMBIEN CR [Suspect]
     Indication: INSOMNIA
     Dosage: 12.MG 1 TABLET BEFORE BE PO
     Route: 048
     Dates: start: 20090116, end: 20090118

REACTIONS (1)
  - HALLUCINATION, VISUAL [None]
